FAERS Safety Report 7198620-7 (Version None)
Quarter: 2010Q4

REPORT INFORMATION
  Report Type: 
  Country: None (occurrence: None)
  Receive Date: 20101227
  Receipt Date: 20100204
  Transmission Date: 20110411
  Serious: No
  Sender: FDA-Public Use
  Company Number: US-ABBOTT-09P-163-0617119-00

PATIENT
  Sex: Male
  Weight: 111.68 kg

DRUGS (11)
  1. LUPRON DEPOT [Suspect]
     Indication: PROSTATE CANCER
     Route: 050
     Dates: start: 20060801
  2. ZOLADEX [Concomitant]
     Indication: PROSTATE CANCER
     Route: 048
     Dates: start: 20090101
  3. LIPITOR [Concomitant]
     Indication: BLOOD CHOLESTEROL INCREASED
     Route: 048
  4. LISINOPRIL [Concomitant]
     Indication: HYPERTENSION
     Route: 048
     Dates: start: 20070101
  5. NORCO [Concomitant]
     Indication: NECK PAIN
     Dosage: 10/325MG
     Route: 048
  6. NORCO [Concomitant]
     Indication: BACK PAIN
  7. BICALUTAMIDE [Concomitant]
     Indication: ADJUVANT THERAPY
     Dates: start: 20091218
  8. AMITRIPTYLINE [Concomitant]
     Indication: INSOMNIA
  9. ADVAIR DISKUS 100/50 [Concomitant]
     Indication: DYSPNOEA
     Dosage: 250/50
  10. PENCONAZOLE [Concomitant]
     Indication: ONYCHOMYCOSIS
  11. TRIAMCINOLONE [Concomitant]
     Indication: ECZEMA

REACTIONS (3)
  - HOT FLUSH [None]
  - HYPERTENSION [None]
  - PROSTATIC SPECIFIC ANTIGEN INCREASED [None]
